FAERS Safety Report 21358768 (Version 1)
Quarter: 2022Q3

REPORT INFORMATION
  Report Type: Spontaneous
  Country: CA (occurrence: None)
  Receive Date: 20220921
  Receipt Date: 20220921
  Transmission Date: 20221027
  Serious: Yes (Other)
  Sender: FDA-Public Use
  Company Number: CA-ROCHE-3179593

PATIENT
  Age: 72 Year
  Sex: Female

DRUGS (4)
  1. BEVACIZUMAB [Suspect]
     Active Substance: BEVACIZUMAB
     Indication: Metastases to liver
     Dosage: NOT SPECIFIED
     Route: 065
  2. FLUOROURACIL\LEUCOVORIN\OXALIPLATIN [Suspect]
     Active Substance: FLUOROURACIL\LEUCOVORIN\OXALIPLATIN
     Indication: Metastases to liver
     Route: 065
  3. HUMIRA [Suspect]
     Active Substance: ADALIMUMAB
     Indication: Product used for unknown indication
     Route: 058
  4. ONDANSETRON [Suspect]
     Active Substance: ONDANSETRON
     Indication: Nausea
     Dosage: NOT SPECIFIED
     Route: 065

REACTIONS (5)
  - Bowel movement irregularity [Recovered/Resolved]
  - Colon neoplasm [Recovered/Resolved]
  - Colorectal cancer stage IV [Recovered/Resolved]
  - Metastases to liver [Recovered/Resolved]
  - Nausea [Recovered/Resolved]
